FAERS Safety Report 21576749 (Version 1)
Quarter: 2022Q4

REPORT INFORMATION
  Report Type: Report from Study
  Country: US (occurrence: US)
  Receive Date: 20221110
  Receipt Date: 20221110
  Transmission Date: 20230113
  Serious: Yes (Other)
  Sender: FDA-Public Use
  Company Number: US-EXELIXIS-CABO-22056728

PATIENT
  Sex: Female

DRUGS (1)
  1. CABOMETYX [Suspect]
     Active Substance: CABOZANTINIB S-MALATE
     Indication: Renal cancer
     Dosage: 40 MG, QD
     Route: 048
     Dates: start: 20220922

REACTIONS (7)
  - Anal blister [Unknown]
  - Blister [Unknown]
  - Pain [Unknown]
  - Fatigue [Unknown]
  - Oral mucosal blistering [Unknown]
  - Diarrhoea [Recovered/Resolved]
  - Blood pressure systolic increased [Unknown]
